FAERS Safety Report 10065211 (Version 2)
Quarter: 2015Q2

REPORT INFORMATION
  Report Type: Spontaneous
  Country: US (occurrence: US)
  Receive Date: 20140408
  Receipt Date: 20150407
  Transmission Date: 20150821
  Serious: Yes (Death, Life-Threatening, Hospitalization, Other)
  Sender: FDA-Public Use
  Company Number: US-009507513-1404USA004087

PATIENT
  Sex: Male
  Weight: 94.33 kg

DRUGS (1)
  1. JANUMET [Suspect]
     Active Substance: METFORMIN HYDROCHLORIDE\SITAGLIPTIN PHOSPHATE
     Indication: TYPE 2 DIABETES MELLITUS
     Dosage: 50-1,000 MG, BID
     Route: 048
     Dates: start: 20070514, end: 20111217

REACTIONS (8)
  - Death [Fatal]
  - Arteriosclerosis coronary artery [Unknown]
  - Adenocarcinoma pancreas [Unknown]
  - Splenectomy [Unknown]
  - Metastases to lymph nodes [Unknown]
  - Pancreatitis chronic [Not Recovered/Not Resolved]
  - Type 1 diabetes mellitus [Unknown]
  - Pancreatectomy [Unknown]

NARRATIVE: CASE EVENT DATE: 20130523
